FAERS Safety Report 15783430 (Version 1)
Quarter: 2019Q1

REPORT INFORMATION
  Report Type: Report from Study
  Country: ES (occurrence: ES)
  Receive Date: 20190102
  Receipt Date: 20190102
  Transmission Date: 20190417
  Serious: Yes (Hospitalization)
  Sender: FDA-Public Use
  Company Number: ES-MYLANLABS-2018M1096824

PATIENT
  Age: 46 Year
  Sex: Female

DRUGS (4)
  1. SULFADIAZINA [Suspect]
     Active Substance: SULFADIAZINE
     Indication: TOXOPLASMOSIS
     Dosage: UNK UNK, QD (1-1-1-1)
     Route: 048
     Dates: start: 20170408, end: 20170419
  2. PIRIMETAMINA [Suspect]
     Active Substance: PYRIMETHAMINE
     Indication: TOXOPLASMOSIS
     Dosage: UNK UNK, QD (1-0-0)
     Route: 048
     Dates: start: 20170408, end: 20170419
  3. SULFAMETOXAZOL/TRIMETOPRIM [Concomitant]
     Active Substance: SULFAMETHOXAZOLE\TRIMETHOPRIM
     Dosage: UNK
     Route: 048
     Dates: start: 20170421, end: 20170512
  4. DILTIAZEM. [Suspect]
     Active Substance: DILTIAZEM
     Indication: CALCINOSIS
     Dosage: UNK UNK, QD (1-0-0)
     Route: 048
     Dates: start: 20170302, end: 20170419

REACTIONS (1)
  - Drug reaction with eosinophilia and systemic symptoms [Recovered/Resolved]
